FAERS Safety Report 8849116 (Version 1)
Quarter: 2012Q4

REPORT INFORMATION
  Report Type: Report from Study
  Country: CA (occurrence: CA)
  Receive Date: 20121019
  Receipt Date: 20121019
  Transmission Date: 20130627
  Serious: Yes (Other)
  Sender: FDA-Public Use
  Company Number: CA-JNJFOC-20121007090

PATIENT
  Sex: Female
  Weight: 42 kg

DRUGS (2)
  1. REMICADE [Suspect]
     Indication: RHEUMATOID ARTHRITIS
     Dosage: frequency of administration: every 8 h
     Route: 042
     Dates: start: 2002
  2. BENADRYL [Concomitant]
     Route: 048

REACTIONS (1)
  - Cataract [Recovering/Resolving]
